FAERS Safety Report 6574416-1 (Version None)
Quarter: 2010Q1

REPORT INFORMATION
  Report Type: 
  Country: None (occurrence: None)
  Receive Date: 20100209
  Receipt Date: 20100126
  Transmission Date: 20100710
  Serious: Yes (Other)
  Sender: FDA-Public Use
  Company Number: IT-NOVOPROD-301989

PATIENT

DRUGS (2)
  1. NORDITROPIN [Suspect]
     Indication: DRUG USE FOR UNKNOWN INDICATION
  2. NORDITROPIN [Suspect]
     Dosage: UNK
     Dates: start: 20100104

REACTIONS (3)
  - DEVICE MALFUNCTION [None]
  - HEADACHE [None]
  - OVERDOSE [None]
